FAERS Safety Report 4701011-9 (Version None)
Quarter: 2005Q2

REPORT INFORMATION
  Report Type: 
  Country: None (occurrence: None)
  Receive Date: 20050624
  Receipt Date: 20050614
  Transmission Date: 20051028
  Serious: Yes (Hospitalization)
  Sender: FDA-Public Use
  Company Number: 2005BI002101

PATIENT
  Age: 43 Year
  Sex: Female

DRUGS (13)
  1. AVONEX [Suspect]
     Indication: MULTIPLE SCLEROSIS
     Dosage: 30 UG; QW; IM
     Route: 030
     Dates: start: 20040519
  2. ACETAMINOPHEN [Concomitant]
  3. LABETALOL [Concomitant]
  4. PROTONIX [Concomitant]
  5. NORVASC [Concomitant]
  6. LORAZEPAM [Concomitant]
  7. CLONIDINE [Concomitant]
  8. LEXAPRO [Concomitant]
  9. MINOXIDIL [Concomitant]
  10. ASPIRIN [Concomitant]
  11. FUROSEMIDE [Concomitant]
  12. PERCOCET [Concomitant]
  13. FERROUS SULFATE TAB [Concomitant]

REACTIONS (2)
  - PANCREATIC PSEUDOCYST [None]
  - PANCREATITIS [None]
